FAERS Safety Report 6899412-6 (Version None)
Quarter: 2010Q3

REPORT INFORMATION
  Report Type: 
  Country: None (occurrence: None)
  Receive Date: 20100803
  Receipt Date: 20090630
  Transmission Date: 20110219
  Serious: Yes (Other)
  Sender: FDA-Public Use
  Company Number: US-PFIZER INC-2007083312

PATIENT
  Sex: Female
  Weight: 77.3 kg

DRUGS (10)
  1. LYRICA [Suspect]
     Indication: PAIN
     Dosage: 50 MG, 3X/DAY
     Dates: start: 20070301
  2. ACTOS [Concomitant]
  3. AVALIDE [Concomitant]
     Dosage: UNK
     Route: 048
  4. AVALIDE [Concomitant]
     Route: 048
  5. TYLENOL [Concomitant]
  6. VITAMIN E [Concomitant]
  7. MULTI-VITAMINS [Concomitant]
  8. ANALGESICS [Concomitant]
  9. AVANDIA [Concomitant]
  10. METFORMIN HCL/PIOGLITAZONE HCL [Concomitant]
     Route: 048

REACTIONS (3)
  - DRUG INEFFECTIVE [None]
  - OEDEMA PERIPHERAL [None]
  - WEIGHT INCREASED [None]
